FAERS Safety Report 11794744 (Version 1)
Quarter: 2015Q4

REPORT INFORMATION
  Report Type: Spontaneous
  Country: US (occurrence: US)
  Receive Date: 20151202
  Receipt Date: 20151202
  Transmission Date: 20160305
  Serious: No
  Sender: FDA-Public Use
  Company Number: US-BAYER-2015-473565

PATIENT
  Age: 51 Year
  Sex: Female

DRUGS (1)
  1. MIRENA [Suspect]
     Active Substance: LEVONORGESTREL
     Indication: CONTRACEPTION
     Dosage: 20 MCG/24HR, CONT
     Route: 015
     Dates: start: 201506, end: 201508

REACTIONS (10)
  - Nervousness [None]
  - Vomiting [None]
  - Amenorrhoea [None]
  - Pelvic pain [None]
  - Nausea [None]
  - Procedural pain [None]
  - Dizziness [None]
  - Gastrooesophageal reflux disease [None]
  - Abdominal pain upper [None]
  - Hyperhidrosis [None]

NARRATIVE: CASE EVENT DATE: 2015
